FAERS Safety Report 12402847 (Version 1)
Quarter: 2016Q2

REPORT INFORMATION
  Report Type: Spontaneous
  Country: FR (occurrence: FR)
  Receive Date: 20160525
  Receipt Date: 20160525
  Transmission Date: 20160815
  Serious: Yes (Death, Other)
  Sender: FDA-Public Use
  Company Number: FR-MDT-ADR-2016-00940

PATIENT
  Age: 49 Year
  Sex: Male

DRUGS (2)
  1. BACLOFEN. [Suspect]
     Active Substance: BACLOFEN
     Route: 065
  2. SERESTRA (OXAZEPAM) [Suspect]
     Active Substance: OXAZEPAM
     Dosage: 50 MG/DAY
     Route: 066

REACTIONS (2)
  - Drug screen positive [Fatal]
  - Drug level increased [Fatal]
